FAERS Safety Report 18735597 (Version 1)
Quarter: 2021Q1

REPORT INFORMATION
  Report Type: Spontaneous
  Country: US (occurrence: US)
  Receive Date: 20210113
  Receipt Date: 20210113
  Transmission Date: 20210419
  Serious: Yes (Other)
  Sender: FDA-Public Use
  Company Number: US-FRESENIUS KABI-FK202100450

PATIENT
  Age: 91 Year
  Sex: Female

DRUGS (2)
  1. MANNITOL 20% (MANUFACTURER UNKNOWN) [Suspect]
     Active Substance: MANNITOL
     Dosage: 2G/KG
     Route: 065
  2. MANNITOL 20% (MANUFACTURER UNKNOWN) [Suspect]
     Active Substance: MANNITOL
     Indication: INTRAOCULAR PRESSURE INCREASED
     Dosage: 2G/KG
     Route: 065

REACTIONS (4)
  - Hyponatraemia [Recovered/Resolved]
  - Hyperkalaemia [Recovered/Resolved]
  - Azotaemia [Recovered/Resolved]
  - Acute kidney injury [Recovered/Resolved]
